FAERS Safety Report 6801150-2 (Version None)
Quarter: 2010Q2

REPORT INFORMATION
  Report Type: 
  Country: None (occurrence: None)
  Receive Date: 20100629
  Receipt Date: 20100617
  Transmission Date: 20101027
  Serious: Yes (Other)
  Sender: FDA-Public Use
  Company Number: US-PFIZER INC-2010045855

PATIENT
  Sex: Female

DRUGS (1)
  1. SUTENT [Suspect]
     Indication: GASTROINTESTINAL STROMAL TUMOUR
     Dosage: 12.5 MG, 3X/DAY, DAILY X 28 DAYS EVERY 42 DAYS
     Route: 048
     Dates: start: 20100323

REACTIONS (3)
  - BLOOD PRESSURE INCREASED [None]
  - HYPERKERATOSIS [None]
  - SKIN EXFOLIATION [None]
